FAERS Safety Report 22153990 (Version 2)
Quarter: 2023Q1

REPORT INFORMATION
  Report Type: Spontaneous
  Country: GB (occurrence: GB)
  Receive Date: 20230330
  Receipt Date: 20230331
  Transmission Date: 20230418
  Serious: Yes (Disabling)
  Sender: FDA-Public Use
  Company Number: None

PATIENT
  Age: 44 Year
  Sex: Female
  Weight: 57 kg

DRUGS (1)
  1. NASONEX [Suspect]
     Active Substance: MOMETASONE FUROATE
     Indication: Rhinitis
     Dosage: UNK
     Dates: start: 1985

REACTIONS (3)
  - Macular degeneration [Not Recovered/Not Resolved]
  - Central vision loss [Unknown]
  - Medication error [Unknown]

NARRATIVE: CASE EVENT DATE: 20030201
